FAERS Safety Report 9865323 (Version 1)
Quarter: 2014Q1

REPORT INFORMATION
  Report Type: Spontaneous
  Country: US (occurrence: US)
  Receive Date: 20140203
  Receipt Date: 20140203
  Transmission Date: 20141002
  Serious: No
  Sender: FDA-Public Use
  Company Number: US-ALLERGAN-1301649US

PATIENT
  Age: 43 Year
  Sex: Female

DRUGS (6)
  1. RESTASIS [Suspect]
     Indication: DRY EYE
     Dosage: 4 GTT, BID
     Route: 047
     Dates: start: 20130131
  2. RESTASIS [Suspect]
     Dosage: 4 GTT, BID
     Route: 047
     Dates: start: 2012, end: 2012
  3. BENICAR HCT [Concomitant]
     Indication: HYPERTENSION
     Dosage: 40 MG, QD
     Route: 048
  4. ACID FLUX [Concomitant]
     Indication: GASTROOESOPHAGEAL REFLUX DISEASE
     Dosage: 20 MG, QD
     Route: 048
  5. MELOXICAM [Concomitant]
     Indication: RHEUMATOID ARTHRITIS
     Dosage: 20 MG, QD
     Route: 048
  6. ALBUTEROL                          /00139501/ [Concomitant]
     Indication: ASTHMA
     Dosage: UNK UNK, PRN
     Route: 055

REACTIONS (2)
  - Incorrect dose administered [Unknown]
  - Therapeutic response decreased [Unknown]
